FAERS Safety Report 5504982-6 (Version None)
Quarter: 2007Q4

REPORT INFORMATION
  Report Type: 
  Country: None (occurrence: None)
  Receive Date: 20071031
  Receipt Date: 20071019
  Transmission Date: 20080405
  Serious: Yes (Other)
  Sender: FDA-Public Use
  Company Number: US021500

PATIENT
  Age: 29 Year
  Sex: Female

DRUGS (1)
  1. PROVIGIL [Suspect]
     Indication: SOMNOLENCE
     Dosage: 100 MG SAMPLES QAM ORAL
     Route: 048
     Dates: start: 20071015, end: 20071018

REACTIONS (2)
  - ANGIOEDEMA [None]
  - ORAL HERPES [None]
